FAERS Safety Report 7818939-3 (Version None)
Quarter: 2011Q4

REPORT INFORMATION
  Report Type: 
  Country: None (occurrence: None)
  Receive Date: 20111017
  Receipt Date: 20111017
  Transmission Date: 20120403
  Serious: Yes (Other)
  Sender: FDA-Public Use
  Company Number: None

PATIENT
  Sex: Male

DRUGS (1)
  1. NEXAVAR [Suspect]
     Dosage: 200MG 2 TABS BID PO
     Route: 048
     Dates: start: 20110818, end: 20111001

REACTIONS (3)
  - AMMONIA INCREASED [None]
  - PNEUMONIA [None]
  - SMALL INTESTINAL OBSTRUCTION [None]
